FAERS Safety Report 9576403 (Version 1)
Quarter: 2013Q4

REPORT INFORMATION
  Report Type: Spontaneous
  Country: US (occurrence: US)
  Receive Date: 20131001
  Receipt Date: 20131001
  Transmission Date: 20140711
  Serious: No
  Sender: FDA-Public Use
  Company Number: US-AMGEN-USASP2013003047

PATIENT
  Age: 50 Year
  Sex: Female
  Weight: 79.37 kg

DRUGS (7)
  1. ENBREL [Suspect]
     Indication: PSORIASIS
     Dosage: 50 MG, QWK
     Route: 058
  2. TOPAMAX [Concomitant]
     Dosage: 25 MG, UNK
     Route: 048
  3. IMITREX                            /01044801/ [Concomitant]
     Dosage: 25 MG, UNK
     Route: 048
  4. CLARITIN                           /00413701/ [Concomitant]
     Dosage: 10 MG, UNK
     Route: 048
  5. VITAMIN D                          /00107901/ [Concomitant]
     Dosage: 1000 UNIT, UNK
     Route: 048
  6. PROAIR HFA [Concomitant]
     Dosage: UNK
  7. CALCIUM + VIT D [Concomitant]
     Dosage: UNK
     Route: 048

REACTIONS (1)
  - Sinusitis [Unknown]
